FAERS Safety Report 5042771-X (Version None)
Quarter: 2006Q2

REPORT INFORMATION
  Report Type: 
  Country: None (occurrence: None)
  Receive Date: 20060601
  Receipt Date: 20060225
  Transmission Date: 20061013
  Serious: No
  Sender: FDA-Public Use
  Company Number: 2006PV009316

PATIENT
  Age: 51 Year
  Sex: Male
  Weight: 189.6036 kg

DRUGS (5)
  1. BYETTA [Suspect]
     Indication: DIABETES MELLITUS
     Dosage: 5 MCG;BID;SC
     Route: 058
     Dates: start: 20060220
  2. LANTUS [Concomitant]
  3. METFORMIN [Concomitant]
  4. HUMALOG [Concomitant]
  5. ADVAIR DISKUS 100/50 [Concomitant]

REACTIONS (4)
  - DIZZINESS [None]
  - DRUG EFFECT DECREASED [None]
  - NAUSEA [None]
  - SINUS HEADACHE [None]
